FAERS Safety Report 9934745 (Version 1)
Quarter: 2014Q1

REPORT INFORMATION
  Report Type: Spontaneous
  Country: JP (occurrence: JP)
  Receive Date: 20140228
  Receipt Date: 20140228
  Transmission Date: 20141002
  Serious: Yes (Death)
  Sender: FDA-Public Use
  Company Number: PHHY2014JP024008

PATIENT
  Age: 53 Year
  Sex: Female

DRUGS (2)
  1. EVEROLIMUS [Suspect]
     Indication: OVARIAN CLEAR CELL CARCINOMA
     Dosage: 10 MG, DAY
     Route: 048
     Dates: start: 201203
  2. EVEROLIMUS [Suspect]
     Indication: OFF LABEL USE

REACTIONS (6)
  - Death [Fatal]
  - Malaise [Unknown]
  - Anaemia [Unknown]
  - Hypercholesterolaemia [Unknown]
  - Fatigue [Unknown]
  - Stomatitis [Unknown]
